FAERS Safety Report 7243873-X (Version None)
Quarter: 2011Q1

REPORT INFORMATION
  Report Type: 
  Country: None (occurrence: None)
  Receive Date: 20110125
  Receipt Date: 20110119
  Transmission Date: 20110831
  Serious: Yes (Hospitalization)
  Sender: FDA-Public Use
  Company Number: A0907375A

PATIENT
  Age: 92 Year
  Sex: Female

DRUGS (6)
  1. FLOVENT [Suspect]
     Indication: CHRONIC OBSTRUCTIVE PULMONARY DISEASE
     Route: 065
  2. XOPENEX [Concomitant]
  3. HEART MEDICATION [Concomitant]
  4. COUMADIN [Concomitant]
  5. LYRICA [Concomitant]
  6. EVISTA [Concomitant]

REACTIONS (1)
  - TRANSIENT ISCHAEMIC ATTACK [None]
